FAERS Safety Report 20062285 (Version 1)
Quarter: 2021Q4

REPORT INFORMATION
  Report Type: Spontaneous
  Country: US (occurrence: US)
  Receive Date: 20211112
  Receipt Date: 20211112
  Transmission Date: 20220303
  Serious: No
  Sender: FDA-Public Use
  Company Number: US-AMGEN-USASP2021176236

PATIENT
  Sex: Female

DRUGS (21)
  1. ENBREL [Suspect]
     Active Substance: ETANERCEPT
     Indication: Coeliac disease
     Dosage: 50 MILLIGRAM, QWK
     Route: 058
     Dates: end: 20211013
  2. ENBREL [Suspect]
     Active Substance: ETANERCEPT
     Dosage: 50 MILLIGRAM, QWK
     Route: 058
     Dates: start: 20211108
  3. ACYCLOVIR [Concomitant]
     Active Substance: ACYCLOVIR
     Dosage: 40 MILLIGRAM
  4. ATORVASTATIN [Concomitant]
     Active Substance: ATORVASTATIN
     Dosage: 20 MILLIGRAM
  5. BUPROPION HYDROCHLORIDE [Concomitant]
     Active Substance: BUPROPION HYDROCHLORIDE
     Dosage: 150 MILLIGRAM
  6. CALCIUM [Concomitant]
     Active Substance: CALCIUM
     Dosage: UNK
  7. FOLIC ACID [Concomitant]
     Active Substance: FOLIC ACID
     Dosage: 1 MILLIGRAM
  8. FUROSEMIDE [Concomitant]
     Active Substance: FUROSEMIDE
     Dosage: 20 MILLIGRAM
  9. GLUCOSAMINE [Concomitant]
     Active Substance: GLUCOSAMINE
     Dosage: UNK
  10. IBUPROFEN [Concomitant]
     Active Substance: IBUPROFEN
     Dosage: UNK
  11. FERROUS SULFATE [Concomitant]
     Active Substance: FERROUS SULFATE
     Dosage: UNK
  12. KETOCONAZOLE [Concomitant]
     Active Substance: KETOCONAZOLE
     Dosage: UNK
  13. LANSOPRAZOLE [Concomitant]
     Active Substance: LANSOPRAZOLE
     Dosage: 30 MILLIGRAM
  14. MAGNESIUM [Concomitant]
     Active Substance: MAGNESIUM
     Dosage: UNK
  15. METHOTREXATE [Concomitant]
     Active Substance: METHOTREXATE
     Dosage: 2.5 MILLIGRAM
  16. OXYCODONE HYDROCHLORIDE [Concomitant]
     Active Substance: OXYCODONE HYDROCHLORIDE
     Dosage: 5 MILLIGRAM
  17. SOMA [Concomitant]
     Active Substance: CARISOPRODOL
     Dosage: 350 MILLIGRAM
  18. SPIRONOLACTONE [Concomitant]
     Active Substance: SPIRONOLACTONE
     Dosage: 50 MILLIGRAM
  19. TOVIAZ [Concomitant]
     Active Substance: FESOTERODINE FUMARATE
     Dosage: 8 MILLIGRAM
  20. CHOLECALCIFEROL [Concomitant]
     Active Substance: CHOLECALCIFEROL
     Dosage: UNK
  21. GABAPENTIN [Concomitant]
     Active Substance: GABAPENTIN
     Dosage: 800 MILLIGRAM

REACTIONS (2)
  - Off label use [Unknown]
  - Musculoskeletal disorder [Unknown]
